FAERS Safety Report 25137847 (Version 1)
Quarter: 2025Q1

REPORT INFORMATION
  Report Type: Spontaneous
  Country: AU (occurrence: AU)
  Receive Date: 20250329
  Receipt Date: 20250329
  Transmission Date: 20250408
  Serious: Yes (Other)
  Sender: ACCORD
  Company Number: None

PATIENT
  Age: 59 Year
  Sex: Female

DRUGS (5)
  1. MYCOPHENOLATE MOFETIL [Suspect]
     Active Substance: MYCOPHENOLATE MOFETIL
     Indication: Product used for unknown indication
  2. MYCOPHENOLIC ACID [Suspect]
     Active Substance: MYCOPHENOLIC ACID
     Indication: Product used for unknown indication
  3. TACROLIMUS [Suspect]
     Active Substance: TACROLIMUS
  4. FILGRASTIM [Suspect]
     Active Substance: FILGRASTIM
     Indication: Product used for unknown indication
  5. AZATHIOPRINE [Suspect]
     Active Substance: AZATHIOPRINE
     Indication: Product used for unknown indication

REACTIONS (7)
  - Pancytopenia [Unknown]
  - Bone marrow failure [Unknown]
  - Febrile neutropenia [Unknown]
  - Multiple organ dysfunction syndrome [Unknown]
  - Sepsis [Unknown]
  - Diarrhoea [Unknown]
  - Off label use [Unknown]
